FAERS Safety Report 24402565 (Version 1)
Quarter: 2024Q4

REPORT INFORMATION
  Report Type: Spontaneous
  Country: US (occurrence: US)
  Receive Date: 20241007
  Receipt Date: 20241007
  Transmission Date: 20250115
  Serious: Yes (Hospitalization, Other)
  Sender: HIKMA
  Company Number: US-HIKMA PHARMACEUTICALS USA INC.-US-H14001-24-08924

PATIENT
  Age: 76 Year
  Sex: Male

DRUGS (17)
  1. REMIFENTANIL [Suspect]
     Active Substance: REMIFENTANIL
     Indication: Anaesthesia
     Dosage: AN IV BOLUS OF REMIFENTANIL 260 MCG (3MCG/KG)
     Route: 042
  2. REMIFENTANIL [Suspect]
     Active Substance: REMIFENTANIL
     Dosage: IV REMIFENTANIL CONTINUOUS INFUSION TITRATED PER ANESTHESIOLOGIST (0.1-0.3MCG/KG/MIN)
     Route: 042
  3. ACETAMINOPHEN [Concomitant]
     Active Substance: ACETAMINOPHEN
     Indication: Analgesic therapy
     Dosage: 1000 MILLIGRAM, Q12H
     Route: 065
  4. ACETAMINOPHEN [Concomitant]
     Active Substance: ACETAMINOPHEN
     Indication: Pain
     Dosage: 1000MG FOUR TIMES DAILY
     Route: 065
  5. BUPIVACAINE;LIDOCAINE [Concomitant]
     Indication: Anaesthesia
     Dosage: 30ML LOCAL INJECTION OF BUPIVACAINE-LIDOCAINE 0.25%- 1:200,000
     Route: 065
  6. HYDROMORPHONE [Concomitant]
     Active Substance: HYDROMORPHONE
     Dosage: IV HYDROMORPHONE VIA PATIENT-CONTROLLED ANALGESIA (PCA) (SETTINGS: 0.2MG BOLUS DOSE, 10-MINUTE LOCKO
     Route: 065
  7. HYDROMORPHONE [Concomitant]
     Active Substance: HYDROMORPHONE
     Indication: Analgesic therapy
     Dosage: IV HYDROMORPHONE VIA PATIENT-CONTROLLED ANALGESIA (PCA) (SETTINGS: 0.2MG BOLUS DOSE, 10-MINUTE LOCKO
     Route: 065
  8. KETAMINE [Concomitant]
     Active Substance: KETAMINE
     Indication: Anaesthesia
     Dosage: IV KETAMINE WITH A 0.5MG/KG LOADING DOSE FOLLOWED BY A CONTINUOUS IV INFUSION AT 0.2MG/KG/HR
     Route: 042
  9. KETAMINE [Concomitant]
     Active Substance: KETAMINE
     Dosage: IV KETAMINE WITH A 0.5MG/KG LOADING DOSE FOLLOWED BY A CONTINUOUS IV INFUSION AT 0.2MG/KG/HR
     Route: 042
  10. OXYCODONE [Concomitant]
     Active Substance: OXYCODONE
     Dosage: 10 MILLIGRAM, Q4H, ~ IMMEDIATE-RELEASE (IR) OXYCODONE 10 MG EVERY 4-H AS NEEDED (PRN) FOR MODERATE P
     Route: 065
  11. OXYCODONE [Concomitant]
     Active Substance: OXYCODONE
     Dosage: 15 MILLIGRAM, Q4H, IR OXYCODONE 15MG EVERY 4-H PRN (POSTOPERATIVE ANALGESIC REGIMEN AFTER STAGE 1 SP
     Route: 065
  12. OXYCODONE [Concomitant]
     Active Substance: OXYCODONE
     Dosage: 20 MILLIGRAM, Q12H, ER OXYCODONE 20MG BID (POSTOPERATIVE ANALGESIC REGIMEN AFTER STAGE 1 SPINAL FUSI
     Route: 065
  13. OXYCODONE [Concomitant]
     Active Substance: OXYCODONE
     Indication: Pain
     Dosage: 20 MILLIGRAM, Q4H, IMMEDIATE-RELEASE (IR) OXYCODONE 10 MG EVERY 4-H AS NEEDED (PRN) FOR MODERATE PAI
     Route: 065
  14. OXYCODONE [Concomitant]
     Active Substance: OXYCODONE
     Dosage: 20 MILLIGRAM, Q8H, EXTENDED-RELEASE (ER) OXYCODONE 20MG THREE TIMES DAILY (TID)
     Route: 065
  15. OXYCODONE [Concomitant]
     Active Substance: OXYCODONE
     Dosage: 20 MILLIGRAM, RECEIVED A 20 MG DOSE OF ER OXYCODONE APPROXIMATELY 4-H PRIOR TO THE PROCEDURE
     Route: 065
  16. PROPOFOL [Concomitant]
     Active Substance: PROPOFOL
     Dosage: IV PROPOFOL WITH A BOLUS OF 100 MG FOLLOWED BY A CONTINUOUS INFUSION INITIATED AT 150MCG/KG/MIN WHIC
     Route: 042
  17. PROPOFOL [Concomitant]
     Active Substance: PROPOFOL
     Indication: Anaesthesia
     Dosage: IV PROPOFOL WITH A BOLUS OF 100 MG FOLLOWED BY A CONTINUOUS INFUSION INITIATED AT 150MCG/KG/MIN WHIC
     Route: 065

REACTIONS (1)
  - Hyperaesthesia [Recovering/Resolving]
